FAERS Safety Report 5785974-9 (Version None)
Quarter: 2008Q2

REPORT INFORMATION
  Report Type: 
  Country: None (occurrence: None)
  Receive Date: 20080624
  Receipt Date: 20080611
  Transmission Date: 20081010
  Serious: Yes (Other)
  Sender: FDA-Public Use
  Company Number: PHHY2008ES10618

PATIENT
  Sex: Female

DRUGS (2)
  1. LETROZOLE [Suspect]
     Indication: BREAST CANCER
     Dosage: UNK
     Route: 048
     Dates: end: 20080510
  2. CORTICOSTEROIDS [Concomitant]

REACTIONS (3)
  - ANAEMIA [None]
  - BREAST OPERATION [None]
  - HAEMOGLOBIN DECREASED [None]
